FAERS Safety Report 25345522 (Version 1)
Quarter: 2025Q2

REPORT INFORMATION
  Report Type: Report from Study
  Country: FR (occurrence: FR)
  Receive Date: 20250522
  Receipt Date: 20250522
  Transmission Date: 20250717
  Serious: Yes (Other)
  Sender: RANBAXY
  Company Number: FR-SUN PHARMACEUTICAL INDUSTRIES LTD-2025RR-508720

PATIENT
  Sex: Male

DRUGS (21)
  1. PERINDOPRIL [Suspect]
     Active Substance: PERINDOPRIL
     Indication: Hypertension
     Route: 064
  2. ASPIRIN [Suspect]
     Active Substance: ASPIRIN
     Indication: Pre-eclampsia
     Dosage: 160 MILLIGRAM, DAILY
     Route: 064
  3. ASPIRIN [Suspect]
     Active Substance: ASPIRIN
     Indication: Foetal growth restriction
  4. ASPIRIN [Suspect]
     Active Substance: ASPIRIN
     Indication: Prophylaxis
  5. RAMIPRIL [Suspect]
     Active Substance: RAMIPRIL
     Indication: Hypertension
     Dosage: 2.5 MILLIGRAM, DAILY
     Route: 064
  6. TACROLIMUS [Suspect]
     Active Substance: TACROLIMUS
     Indication: Immunosuppression
     Dosage: 6 MILLIGRAM, DAILY
     Route: 064
  7. TACROLIMUS [Suspect]
     Active Substance: TACROLIMUS
     Dosage: 4 MILLIGRAM, DAILY
     Route: 064
  8. ENTECAVIR [Suspect]
     Active Substance: ENTECAVIR
     Indication: Antiviral treatment
     Dosage: 1 MILLIGRAM, DAILY
     Route: 064
  9. URSODIOL [Suspect]
     Active Substance: URSODIOL
     Indication: Liver disorder
     Dosage: 500 MILLIGRAM, DAILY
     Route: 064
  10. LABETALOL [Suspect]
     Active Substance: LABETALOL
     Indication: Hypertension
     Route: 064
  11. ENOXAPARIN SODIUM [Suspect]
     Active Substance: ENOXAPARIN SODIUM
     Indication: Pre-eclampsia
     Dosage: 3000 IU INTERNATIONAL UNIT(S), DAILY
     Route: 064
  12. ENOXAPARIN SODIUM [Suspect]
     Active Substance: ENOXAPARIN SODIUM
     Indication: Foetal growth restriction
  13. ENOXAPARIN SODIUM [Suspect]
     Active Substance: ENOXAPARIN SODIUM
     Indication: Prophylaxis
  14. NICARDIPINE [Suspect]
     Active Substance: NICARDIPINE
     Indication: Hypertension
     Route: 064
  15. PREDNISONE [Suspect]
     Active Substance: PREDNISONE
     Indication: Immunosuppressant drug therapy
     Dosage: 10 MILLIGRAM, DAILY
     Route: 064
  16. TINZAPARIN [Suspect]
     Active Substance: TINZAPARIN
     Indication: Pre-eclampsia
     Route: 064
  17. TINZAPARIN [Suspect]
     Active Substance: TINZAPARIN
     Indication: Foetal growth restriction
  18. TINZAPARIN [Suspect]
     Active Substance: TINZAPARIN
     Indication: Prophylaxis
  19. DARBEPOETIN ALFA [Concomitant]
     Active Substance: DARBEPOETIN ALFA
     Indication: Supplementation therapy
     Dosage: 30 MICROGRAM, WEEKLY
     Route: 064
  20. SODIUM BICARBONATE [Concomitant]
     Active Substance: SODIUM BICARBONATE
     Indication: Supplementation therapy
     Route: 064
  21. VITAMIN D3 [Concomitant]
     Active Substance: CHOLECALCIFEROL
     Indication: Supplementation therapy
     Route: 064

REACTIONS (2)
  - Foetal exposure during pregnancy [Unknown]
  - Premature baby [Unknown]
